FAERS Safety Report 8470376-7 (Version None)
Quarter: 2012Q2

REPORT INFORMATION
  Report Type: 
  Country: None (occurrence: None)
  Receive Date: 20120627
  Receipt Date: 20120619
  Transmission Date: 20120825
  Serious: No
  Sender: FDA-Public Use
  Company Number: US-B.I. PHARMACEUTICALS,INC./RIDGEFIELD-2012-BP-14054BP

PATIENT
  Age: 81 Year
  Sex: Female

DRUGS (1)
  1. PRADAXA [Suspect]
     Dates: start: 20111201, end: 20120101

REACTIONS (2)
  - CONTUSION [None]
  - INSOMNIA [None]
